FAERS Safety Report 9949014 (Version 1)
Quarter: 2014Q1

REPORT INFORMATION
  Report Type: Spontaneous
  Country: CA (occurrence: CA)
  Receive Date: 20140304
  Receipt Date: 20140304
  Transmission Date: 20141002
  Serious: Yes (Other)
  Sender: FDA-Public Use
  Company Number: CA-ROCHE-1355894

PATIENT
  Sex: Male

DRUGS (2)
  1. AVASTIN [Suspect]
     Indication: HEPATIC CANCER
     Route: 042
     Dates: start: 200603
  2. AVASTIN [Suspect]
     Indication: METASTASES TO LUNG

REACTIONS (2)
  - Blood cholesterol increased [Unknown]
  - Off label use [Unknown]
